FAERS Safety Report 21412398 (Version 1)
Quarter: 2022Q4

REPORT INFORMATION
  Report Type: Spontaneous
  Country: US (occurrence: US)
  Receive Date: 20221005
  Receipt Date: 20221005
  Transmission Date: 20230113
  Serious: No
  Sender: FDA-Public Use
  Company Number: US-INTRA-CELLULAR THERAPIES, INC.-2022ICT01039

PATIENT
  Age: 30 Year
  Sex: Male

DRUGS (4)
  1. CAPLYTA [Suspect]
     Active Substance: LUMATEPERONE
     Indication: Schizoaffective disorder bipolar type
     Dosage: 21 MG (1/2 CAPSULE)
     Route: 048
     Dates: start: 20220606, end: 20220606
  2. ATIVAN [Suspect]
     Active Substance: LORAZEPAM
     Dosage: UNK
     Dates: end: 2022
  3. ATIVAN [Suspect]
     Active Substance: LORAZEPAM
     Dosage: 2 MG
     Dates: start: 20220707
  4. KEPPRA [Concomitant]
     Active Substance: LEVETIRACETAM

REACTIONS (7)
  - Feeling abnormal [Recovered/Resolved]
  - Performance status decreased [Recovered/Resolved]
  - Refusal of treatment by patient [Not Recovered/Not Resolved]
  - Withdrawal syndrome [Recovered/Resolved]
  - Communication disorder [Recovered/Resolved]
  - Fear [Recovered/Resolved]
  - Off label use [Unknown]

NARRATIVE: CASE EVENT DATE: 20220606
